FAERS Safety Report 23196956 (Version 1)
Quarter: 2023Q4

REPORT INFORMATION
  Report Type: Spontaneous
  Country: FR (occurrence: None)
  Receive Date: 20231117
  Receipt Date: 20231117
  Transmission Date: 20240110
  Serious: Yes (Hospitalization)
  Sender: FDA-Public Use
  Company Number: 2023A258282

PATIENT
  Sex: Female
  Weight: 5 kg

DRUGS (1)
  1. BEYFORTUS [Suspect]
     Active Substance: NIRSEVIMAB-ALIP
     Route: 030
     Dates: start: 20230918

REACTIONS (2)
  - Bronchiolitis [Unknown]
  - Vomiting [Unknown]
